FAERS Safety Report 5408307-6 (Version None)
Quarter: 2007Q3

REPORT INFORMATION
  Report Type: 
  Country: None (occurrence: None)
  Receive Date: 20070803
  Receipt Date: 20070724
  Transmission Date: 20080115
  Serious: Yes (Other)
  Sender: FDA-Public Use
  Company Number: CERZ-11739

PATIENT
  Age: 3 Year
  Sex: Male
  Weight: 16.8 kg

DRUGS (1)
  1. CEREZYME [Suspect]
     Indication: GAUCHER'S DISEASE
     Dates: start: 20070604

REACTIONS (6)
  - BRONCHOSPASM [None]
  - CHEST PAIN [None]
  - HYPERHIDROSIS [None]
  - PRODUCTIVE COUGH [None]
  - TACHYCARDIA [None]
  - TACHYPNOEA [None]
